FAERS Safety Report 9300814 (Version 3)
Quarter: 2013Q3

REPORT INFORMATION
  Report Type: Spontaneous
  Country: US (occurrence: US)
  Receive Date: 20130521
  Receipt Date: 20130716
  Transmission Date: 20140515
  Serious: Yes (Other)
  Sender: FDA-Public Use
  Company Number: US-PFIZER INC-2013153740

PATIENT
  Age: 37 Year
  Sex: Male
  Weight: 82.54 kg

DRUGS (2)
  1. DILANTIN [Suspect]
     Dosage: 200 MG, 3X/DAY
     Route: 048
  2. ZONISAMIDE [Suspect]
     Dosage: 50 MG, 2X/DAY

REACTIONS (2)
  - Convulsion [Unknown]
  - Fatigue [Unknown]
